FAERS Safety Report 6804356-1 (Version None)
Quarter: 2010Q2

REPORT INFORMATION
  Report Type: 
  Country: None (occurrence: None)
  Receive Date: 20100628
  Receipt Date: 20070409
  Transmission Date: 20101027
  Serious: No
  Sender: FDA-Public Use
  Company Number: US-PFIZER INC-2007011228

PATIENT
  Sex: Female
  Weight: 86.18 kg

DRUGS (2)
  1. GEODON [Suspect]
     Indication: OBSESSIVE-COMPULSIVE DISORDER
     Dates: start: 20070101
  2. PROZAC [Concomitant]

REACTIONS (5)
  - CHEST DISCOMFORT [None]
  - HEART RATE INCREASED [None]
  - INCREASED APPETITE [None]
  - NAUSEA [None]
  - SOMNOLENCE [None]
